FAERS Safety Report 7954168-0 (Version None)
Quarter: 2011Q4

REPORT INFORMATION
  Report Type: 
  Country: None (occurrence: None)
  Receive Date: 20111202
  Receipt Date: 20111121
  Transmission Date: 20120403
  Serious: Yes (Hospitalization)
  Sender: FDA-Public Use
  Company Number: FR-VERTEX PHARMACEUTICALS INC.-AE-2011-004004

PATIENT
  Sex: 0

DRUGS (2)
  1. INCIVO (TELAPREVIR) [Suspect]
     Indication: HEPATITIS C
     Route: 048
  2. BOSENTAN [Concomitant]
     Indication: PULMONARY ARTERIAL HYPERTENSION
     Route: 065

REACTIONS (6)
  - DRUG LEVEL INCREASED [None]
  - BALANCE DISORDER [None]
  - OFF LABEL USE [None]
  - DISORIENTATION [None]
  - ASTHENIA [None]
  - DRUG INTERACTION [None]
